FAERS Safety Report 4693187-7 (Version None)
Quarter: 2005Q2

REPORT INFORMATION
  Report Type: 
  Country: None (occurrence: None)
  Receive Date: 20050617
  Receipt Date: 20050614
  Transmission Date: 20051028
  Serious: Yes (Disabling, Other)
  Sender: FDA-Public Use
  Company Number: US-JNJFOC-20050406031

PATIENT
  Age: 58 Year
  Sex: Female

DRUGS (2)
  1. LEVAQUIN [Suspect]
     Route: 049
     Dates: start: 20021229, end: 20030123
  2. LEVAQUIN [Suspect]
     Route: 049
     Dates: start: 20021229, end: 20030123

REACTIONS (3)
  - MENISCUS LESION [None]
  - MONARTHRITIS [None]
  - ROTATOR CUFF SYNDROME [None]
